FAERS Safety Report 17812598 (Version 3)
Quarter: 2020Q2

REPORT INFORMATION
  Report Type: Spontaneous
  Country: US (occurrence: US)
  Receive Date: 20200521
  Receipt Date: 20200529
  Transmission Date: 20200714
  Serious: No
  Sender: FDA-Public Use
  Company Number: NVSC2020US137679

PATIENT
  Sex: Male

DRUGS (1)
  1. VOTRIENT [Suspect]
     Active Substance: PAZOPANIB HYDROCHLORIDE
     Indication: THYROID CANCER
     Dosage: 4 UNK ( TABLETS)
     Route: 048
     Dates: start: 20200509

REACTIONS (3)
  - Blood pressure increased [Unknown]
  - Muscle spasms [Unknown]
  - Product use in unapproved indication [Unknown]
